FAERS Safety Report 19607621 (Version 1)
Quarter: 2021Q3

REPORT INFORMATION
  Report Type: Other
  Country: CA (occurrence: CA)
  Receive Date: 20210726
  Receipt Date: 20210726
  Transmission Date: 20211014
  Serious: Yes (Hospitalization)
  Sender: FDA-Public Use
  Company Number: CA-CELLTRION INC.-2021CA009700

PATIENT

DRUGS (5)
  1. CYTARABINE INJECTION [Concomitant]
     Active Substance: CYTARABINE
  2. METHOTREXATE. [Concomitant]
     Active Substance: METHOTREXATE
  3. TRUXIMA [Suspect]
     Active Substance: RITUXIMAB-ABBS
     Indication: B-CELL LYMPHOMA
     Dosage: 600 MG, 4 EVERY 6 WEEKS
     Route: 042
  4. PROCARBAZINE [Concomitant]
     Active Substance: PROCARBAZINE
  5. TRUXIMA [Suspect]
     Active Substance: RITUXIMAB-ABBS
     Dosage: 600 MG, 4 EVERY 6 WEEKS
     Route: 042

REACTIONS (5)
  - Dyspnoea exertional [Unknown]
  - Dyspnoea [Unknown]
  - Overdose [Unknown]
  - Off label use [Unknown]
  - Pneumonitis [Unknown]
